FAERS Safety Report 24258956 (Version 8)
Quarter: 2025Q3

REPORT INFORMATION
  Report Type: Spontaneous
  Country: US (occurrence: US)
  Receive Date: 20240828
  Receipt Date: 20250810
  Transmission Date: 20251021
  Serious: No
  Sender: ALEXION PHARMACEUTICALS
  Company Number: US-AstraZeneca-2024A179495

PATIENT
  Age: 58 Year
  Sex: Female

DRUGS (1)
  1. AIRSUPRA [Suspect]
     Active Substance: ALBUTEROL SULFATE\BUDESONIDE

REACTIONS (5)
  - Dyspnoea [Unknown]
  - Extra dose administered [Unknown]
  - Device delivery system issue [Unknown]
  - Device use issue [Unknown]
  - Incorrect dose administered by device [Unknown]

NARRATIVE: CASE EVENT DATE: 20240701
